FAERS Safety Report 6730543-7 (Version None)
Quarter: 2010Q2

REPORT INFORMATION
  Report Type: 
  Country: None (occurrence: None)
  Receive Date: 20100514
  Receipt Date: 20100429
  Transmission Date: 20101027
  Serious: Yes (Other)
  Sender: FDA-Public Use
  Company Number: DSA_42510_2010

PATIENT
  Sex: Female

DRUGS (2)
  1. WELLBUTRIN XL [Suspect]
     Indication: DEPRESSION
     Dosage: 300MG ORAL
     Route: 048
     Dates: start: 20081001, end: 20091231
  2. MICROGYNON /00022701/ (MYCROGYNON /00022701/) ETHINYLOESTRADIOL + LEVO [Suspect]
     Indication: CONTRACEPTION
     Dosage: DF

REACTIONS (2)
  - DRUG EXPOSURE DURING PREGNANCY [None]
  - PREGNANCY ON ORAL CONTRACEPTIVE [None]
